FAERS Safety Report 7764864-6 (Version None)
Quarter: 2011Q3

REPORT INFORMATION
  Report Type: 
  Country: None (occurrence: None)
  Receive Date: 20110921
  Receipt Date: 20110920
  Transmission Date: 20111222
  Serious: Yes (Hospitalization, Disabling, Other)
  Sender: FDA-Public Use
  Company Number: US-ROCHE-438845

PATIENT
  Sex: Female
  Weight: 70.3 kg

DRUGS (2)
  1. ORTHO TRI-CYCLEN [Concomitant]
     Dates: end: 19990301
  2. ACCUTANE [Suspect]
     Route: 048
     Dates: start: 19930501, end: 19931015

REACTIONS (45)
  - ILEUS [None]
  - MYALGIA [None]
  - PULMONARY ARTERY ATRESIA [None]
  - GASTRIC POLYPS [None]
  - LEUKOPENIA [None]
  - COLITIS ULCERATIVE [None]
  - AUTOIMMUNE DISORDER [None]
  - POUCHITIS [None]
  - PSEUDOPOLYP [None]
  - FATIGUE [None]
  - IRRITABLE BOWEL SYNDROME [None]
  - OSTEOPENIA [None]
  - MITRAL VALVE INCOMPETENCE [None]
  - BRONCHITIS [None]
  - GASTROINTESTINAL HAEMORRHAGE [None]
  - ENDOMETRIOSIS [None]
  - GASTROOESOPHAGEAL REFLUX DISEASE [None]
  - RHEUMATOID ARTHRITIS [None]
  - VENTRICULAR EXTRASYSTOLES [None]
  - ARTHRALGIA [None]
  - ANAL FISSURE [None]
  - ARTHRITIS [None]
  - ANAEMIA [None]
  - NEUTROPENIA [None]
  - TRICUSPID VALVE INCOMPETENCE [None]
  - SCOLIOSIS [None]
  - GASTRITIS [None]
  - HIATUS HERNIA [None]
  - INSOMNIA [None]
  - ANXIETY [None]
  - BACK PAIN [None]
  - SPONDYLOARTHROPATHY [None]
  - PROCTITIS ULCERATIVE [None]
  - INFLAMMATORY BOWEL DISEASE [None]
  - COLITIS [None]
  - PYODERMA GANGRENOSUM [None]
  - SUICIDAL IDEATION [None]
  - DEPRESSION [None]
  - HAEMORRHOIDS [None]
  - SUPRAVENTRICULAR EXTRASYSTOLES [None]
  - PORTAL VEIN THROMBOSIS [None]
  - BENIGN NEOPLASM OF BLADDER [None]
  - BURSITIS [None]
  - MITRAL VALVE PROLAPSE [None]
  - OVARIAN CYST [None]
